FAERS Safety Report 9655897 (Version 3)
Quarter: 2014Q2

REPORT INFORMATION
  Report Type: Spontaneous
  Country: IT (occurrence: IT)
  Receive Date: 20131030
  Receipt Date: 20140401
  Transmission Date: 20141212
  Serious: Yes (Hospitalization)
  Sender: FDA-Public Use
  Company Number: IT-RANBAXY-2013RR-74549

PATIENT
  Age: 65 Year
  Sex: Female

DRUGS (1)
  1. PARACETAMOL [Suspect]
     Indication: BACK PAIN
     Dosage: UNK
     Route: 048

REACTIONS (2)
  - Transaminases increased [Recovering/Resolving]
  - Drug abuse [Recovering/Resolving]
